FAERS Safety Report 8243098-5 (Version None)
Quarter: 2012Q1

REPORT INFORMATION
  Report Type: 
  Country: None (occurrence: None)
  Receive Date: 20120329
  Receipt Date: 20110525
  Transmission Date: 20120608
  Serious: No
  Sender: FDA-Public Use
  Company Number: US-MYLANLABS-2011S1011102

PATIENT
  Age: 68 Year
  Sex: Male
  Weight: 95.26 kg

DRUGS (1)
  1. ALBUTEROL SULATE [Suspect]
     Indication: CHRONIC OBSTRUCTIVE PULMONARY DISEASE
     Route: 045
     Dates: start: 20040101, end: 20110101

REACTIONS (4)
  - FEELING ABNORMAL [None]
  - OXYGEN CONSUMPTION DECREASED [None]
  - HEART RATE INCREASED [None]
  - OBSTRUCTIVE AIRWAYS DISORDER [None]
